FAERS Safety Report 6936914-8 (Version None)
Quarter: 2010Q3

REPORT INFORMATION
  Report Type: 
  Country: None (occurrence: None)
  Receive Date: 20100823
  Receipt Date: 20100811
  Transmission Date: 20110219
  Serious: Yes (Hospitalization)
  Sender: FDA-Public Use
  Company Number: FR-ELI_LILLY_AND_COMPANY-FR201008002956

PATIENT
  Sex: Male

DRUGS (8)
  1. ALIMTA [Suspect]
     Indication: NON-SMALL CELL LUNG CANCER
     Dosage: 23.8095 MG/M2, UNKNOWN
     Route: 042
     Dates: start: 20100208, end: 20100322
  2. ALIMTA [Suspect]
     Dosage: 23.8095 MG/M2, UNKNOWN
     Route: 042
     Dates: start: 20100301
  3. ALIMTA [Suspect]
     Dosage: 23.8095 MG/M2, UNK
     Route: 042
     Dates: start: 20100322
  4. TAHOR [Concomitant]
     Dosage: 40 MG, UNKNOWN
     Route: 065
  5. PLAVIX [Concomitant]
     Dosage: 75 MG, UNKNOWN
     Route: 065
  6. INIPOMP [Concomitant]
     Dosage: UNK, UNKNOWN
     Route: 065
  7. VITAMIN B-12 [Concomitant]
     Dosage: UNK, UNKNOWN
     Route: 065
  8. ACEBUTOLOL [Concomitant]
     Dosage: UNK, UNKNOWN
     Route: 065

REACTIONS (5)
  - DERMATITIS [None]
  - ERYTHEMA [None]
  - OEDEMA PERIPHERAL [None]
  - PAIN IN EXTREMITY [None]
  - PIGMENTATION DISORDER [None]
